FAERS Safety Report 24943133 (Version 2)
Quarter: 2025Q1

REPORT INFORMATION
  Report Type: Spontaneous
  Country: ES (occurrence: ES)
  Receive Date: 20250207
  Receipt Date: 20250212
  Transmission Date: 20250408
  Serious: Yes (Hospitalization, Other)
  Sender: SANOFI AVENTIS
  Company Number: ES-MLMSERVICE-20250130-PI326882-00306-6

PATIENT
  Age: 32 Year
  Sex: Male

DRUGS (8)
  1. THYMOGLOBULIN [Suspect]
     Active Substance: LAPINE T-LYMPHOCYTE IMMUNE GLOBULIN
     Indication: Renal transplant
     Dates: start: 2016, end: 2016
  2. PREDNISONE [Suspect]
     Active Substance: PREDNISONE
     Indication: Renal transplant
  3. METHYLPREDNISOLONE [Suspect]
     Active Substance: METHYLPREDNISOLONE
     Indication: Renal transplant
     Route: 040
  4. TACROLIMUS [Suspect]
     Active Substance: TACROLIMUS
     Indication: Renal transplant
     Dates: end: 202301
  5. SIROLIMUS [Suspect]
     Active Substance: SIROLIMUS
     Indication: Renal transplant
  6. BELATACEPT [Suspect]
     Active Substance: BELATACEPT
     Indication: Renal transplant
     Dates: start: 2023, end: 2023
  7. BELATACEPT [Suspect]
     Active Substance: BELATACEPT
     Dosage: 400 MG, QM
     Dates: start: 2023, end: 2023
  8. SULFAMETHOXAZOLE\TRIMETHOPRIM [Concomitant]
     Active Substance: SULFAMETHOXAZOLE\TRIMETHOPRIM
     Indication: Prophylaxis

REACTIONS (10)
  - Enterocolitis viral [Recovered/Resolved]
  - Epstein-Barr virus infection [Recovered/Resolved]
  - Colitis ulcerative [Recovered/Resolved]
  - Abscess intestinal [Recovered/Resolved]
  - Pyrexia [Recovered/Resolved]
  - Abdominal pain [Recovered/Resolved]
  - Diarrhoea [Recovered/Resolved]
  - Abdominal tenderness [Recovered/Resolved]
  - Terminal ileitis [Recovered/Resolved]
  - Cytomegalovirus infection [Recovered/Resolved]

NARRATIVE: CASE EVENT DATE: 20230101
